FAERS Safety Report 5290159-9 (Version None)
Quarter: 2007Q1

REPORT INFORMATION
  Report Type: 
  Country: None (occurrence: None)
  Receive Date: 20070330
  Receipt Date: 20070320
  Transmission Date: 20070707
  Serious: Yes (Other)
  Sender: FDA-Public Use
  Company Number: 2007312157

PATIENT
  Sex: Male

DRUGS (1)
  1. NICOTINE [Suspect]
     Dosage: TRANSDERMAL
     Route: 062

REACTIONS (1)
  - LOSS OF CONSCIOUSNESS [None]
